FAERS Safety Report 17886146 (Version 1)
Quarter: 2020Q2

REPORT INFORMATION
  Report Type: Spontaneous
  Country: NL (occurrence: FR)
  Receive Date: 20200611
  Receipt Date: 20200611
  Transmission Date: 20200714
  Serious: Yes (Hospitalization, Other)
  Sender: FDA-Public Use
  Company Number: FR-FRESENIUS KABI-FK202005724

PATIENT
  Sex: Female
  Weight: 113 kg

DRUGS (2)
  1. PACLITAXEL (MANUFACTURER UNKNOWN) [Suspect]
     Active Substance: PACLITAXEL
     Indication: HEAD AND NECK CANCER METASTATIC
     Dosage: 80 MILLIGRAM/SQ.METER, A TOTAL DOSE OF 260 MG
     Route: 065
     Dates: start: 20180427
  2. CARBOPLATIN. [Suspect]
     Active Substance: CARBOPLATIN
     Indication: HEAD AND NECK CANCER METASTATIC
     Dosage: 1 DOSAGE FORM EQUAL AUC2, I.E. A TOTAL DOSE OF 350 MG
     Route: 065
     Dates: start: 20180427

REACTIONS (1)
  - Cellulitis [Unknown]
